FAERS Safety Report 22231351 (Version 5)
Quarter: 2023Q2

REPORT INFORMATION
  Report Type: Report from Study
  Country: KR (occurrence: KR)
  Receive Date: 20230420
  Receipt Date: 20230526
  Transmission Date: 20230722
  Serious: Yes (Death, Hospitalization, Other)
  Sender: FDA-Public Use
  Company Number: KR-SA-SAC20220915002121

PATIENT
  Age: 69 Year
  Sex: Male
  Weight: 50.04 kg

DRUGS (30)
  1. AFLIBERCEPT [Suspect]
     Active Substance: AFLIBERCEPT
     Indication: Colon cancer
     Dosage: 4 MG/KG, QOW
     Route: 042
     Dates: start: 20220407, end: 20230323
  2. IRINOTECAN [Suspect]
     Active Substance: IRINOTECAN
     Indication: Colon cancer
     Dosage: 180 MG/M2, QOW
     Route: 042
     Dates: start: 20220407, end: 20220811
  3. IRINOTECAN [Suspect]
     Active Substance: IRINOTECAN
     Dosage: 235 MG, QOW
     Route: 042
     Dates: start: 20220830, end: 20230307
  4. IRINOTECAN [Suspect]
     Active Substance: IRINOTECAN
     Dosage: 220 MG, QOW
     Route: 042
     Dates: start: 20230323, end: 20230323
  5. LEUCOVORIN [Suspect]
     Active Substance: LEUCOVORIN
     Indication: Colon cancer
     Dosage: 200 MG/M2, QOW
     Route: 042
     Dates: start: 20220407, end: 20220811
  6. LEUCOVORIN [Suspect]
     Active Substance: LEUCOVORIN
     Dosage: 260 MG, QOW
     Route: 042
     Dates: start: 20220830, end: 20230307
  7. LEUCOVORIN [Suspect]
     Active Substance: LEUCOVORIN
     Dosage: 245 MG, QOW
     Route: 042
     Dates: start: 20230323, end: 20230323
  8. FLUOROURACIL [Suspect]
     Active Substance: FLUOROURACIL
     Indication: Colon cancer
     Dosage: 400 MG/M2, QOW(BOLUS)
     Route: 040
     Dates: start: 20220407, end: 20220527
  9. FLUOROURACIL [Suspect]
     Active Substance: FLUOROURACIL
     Dosage: 2400 MG/M2, QOW(CONTINUOUS INFUSION)
     Route: 040
     Dates: start: 20220407, end: 20220811
  10. FLUOROURACIL [Suspect]
     Active Substance: FLUOROURACIL
     Dosage: 3130 MG, QOW
     Route: 040
     Dates: start: 20220830, end: 20230307
  11. FLUOROURACIL [Suspect]
     Active Substance: FLUOROURACIL
     Dosage: 2938 MG, QOW
     Route: 040
     Dates: start: 20230323, end: 20230323
  12. MAGMIL S [Concomitant]
     Indication: Constipation
     Dosage: 2 DF, BID
     Route: 048
     Dates: start: 20230221, end: 20230329
  13. PROPACETAMOL HYDROCHLORIDE [Concomitant]
     Active Substance: PROPACETAMOL HYDROCHLORIDE
     Indication: Pyrexia
     Dosage: 1 DF, QD
     Route: 042
     Dates: start: 20220909, end: 20220909
  14. PROPACETAMOL HYDROCHLORIDE [Concomitant]
     Active Substance: PROPACETAMOL HYDROCHLORIDE
     Dosage: 1 DF, QD
     Route: 042
     Dates: start: 20220912, end: 20220912
  15. PROPACETAMOL HYDROCHLORIDE [Concomitant]
     Active Substance: PROPACETAMOL HYDROCHLORIDE
     Dosage: 1 DF, QD
     Route: 042
     Dates: start: 20230330, end: 20230406
  16. PROPACETAMOL HYDROCHLORIDE [Concomitant]
     Active Substance: PROPACETAMOL HYDROCHLORIDE
     Dosage: 1 DF, QD
     Route: 042
     Dates: start: 20230205, end: 20230207
  17. SUSPEN 8 HOURS ER [Concomitant]
     Indication: Myalgia
     Dosage: 1 DF, TID
     Route: 048
     Dates: start: 20230323, end: 20230329
  18. AMLODIPINE CAMSYLATE [Concomitant]
     Active Substance: AMLODIPINE CAMSYLATE
     Indication: Hypertension
     Dosage: 1 DF, QD
     Route: 048
     Dates: end: 20230329
  19. SUVAST [ATORVASTATIN CALCIUM] [Concomitant]
     Indication: Dyslipidaemia
     Dosage: 1 DF, QD
     Route: 048
     Dates: end: 20230329
  20. PLASMA SOLUTION A [Concomitant]
     Indication: Pneumonia
     Dosage: 1 DF (1 BAG), QD
     Route: 042
     Dates: start: 20220909, end: 20220909
  21. PLASMA SOLUTION A [Concomitant]
     Dosage: 1 DF (1 BAG), BID
     Route: 042
     Dates: start: 20220910, end: 20220910
  22. AMBROXOL HYDROCHLORIDE [Concomitant]
     Active Substance: AMBROXOL HYDROCHLORIDE
     Indication: Pneumonia
     Dosage: 1 DF, TID (AMPOULE)
     Route: 042
     Dates: start: 20220909
  23. NALOXONE HYDROCHLORIDE\OXYCODONE HYDROCHLORIDE [Concomitant]
     Active Substance: NALOXONE HYDROCHLORIDE\OXYCODONE HYDROCHLORIDE
     Indication: Abdominal pain
     Dosage: 5 MG, BID
     Route: 048
     Dates: start: 20220421
  24. NALOXONE HYDROCHLORIDE\OXYCODONE HYDROCHLORIDE [Concomitant]
     Active Substance: NALOXONE HYDROCHLORIDE\OXYCODONE HYDROCHLORIDE
     Dosage: 1 DF
     Route: 048
     Dates: start: 20230205
  25. HARNAL [Concomitant]
     Active Substance: TAMSULOSIN HYDROCHLORIDE
     Indication: Benign prostatic hyperplasia
     Dosage: 1 DF, QD
     Route: 048
     Dates: start: 20210430
  26. PROPIVERINE [Concomitant]
     Active Substance: PROPIVERINE
     Indication: Pollakiuria
     Dosage: 1 DF, QD
     Route: 048
     Dates: start: 20211209
  27. PROPIVERINE [Concomitant]
     Active Substance: PROPIVERINE
     Indication: Urinary incontinence
  28. NEXIUM I.V. [Concomitant]
     Active Substance: ESOMEPRAZOLE SODIUM
     Indication: Gastric ulcer
     Dosage: 1 DF, QD
     Route: 048
     Dates: start: 20210413
  29. LYRICA [Concomitant]
     Active Substance: PREGABALIN
     Indication: Neuropathy peripheral
     Dosage: 1 DF, BID
     Route: 048
     Dates: start: 20211206
  30. CRESTOR [Concomitant]
     Active Substance: ROSUVASTATIN CALCIUM
     Indication: Dyslipidaemia
     Dosage: 1 DF, QD
     Route: 048
     Dates: start: 20230331

REACTIONS (5)
  - Pneumonitis [Fatal]
  - Enteritis infectious [Recovered/Resolved]
  - Pneumonia [Recovered/Resolved]
  - Cholecystitis [Recovering/Resolving]
  - Cholangitis acute [Recovered/Resolved]

NARRATIVE: CASE EVENT DATE: 20220909
